FAERS Safety Report 25761703 (Version 2)
Quarter: 2025Q4

REPORT INFORMATION
  Report Type: Report from Study
  Country: US (occurrence: US)
  Receive Date: 20250904
  Receipt Date: 20251017
  Transmission Date: 20260117
  Serious: Yes (Hospitalization)
  Sender: pharmaAND
  Company Number: US-Pharmaand-2025000975

PATIENT
  Age: 56 Year
  Sex: Female

DRUGS (1)
  1. RUBRACA [Suspect]
     Active Substance: RUCAPARIB CAMSYLATE
     Indication: Ovarian cancer
     Dosage: 2 TABLETS TWICE DAILY
     Route: 048
     Dates: start: 20250813, end: 20250917

REACTIONS (3)
  - Illness [Unknown]
  - Hospitalisation [Unknown]
  - Product dose omission issue [Unknown]
